FAERS Safety Report 11214994 (Version 4)
Quarter: 2018Q4

REPORT INFORMATION
  Report Type: Spontaneous
  Country: JP (occurrence: JP)
  Receive Date: 20150624
  Receipt Date: 20181017
  Transmission Date: 20190204
  Serious: Yes (Other)
  Sender: FDA-Public Use
  Company Number: PHJP2015JP010198

PATIENT
  Age: 73 Year
  Sex: Female
  Weight: 50 kg

DRUGS (2)
  1. ZOMETA [Suspect]
     Active Substance: ZOLEDRONIC ACID
     Indication: PROPHYLAXIS
  2. ZOMETA [Suspect]
     Active Substance: ZOLEDRONIC ACID
     Indication: BREAST CANCER
     Dosage: UNK
     Route: 042
     Dates: start: 2009, end: 201104

REACTIONS (8)
  - Osteonecrosis of jaw [Unknown]
  - Metastases to lymph nodes [Unknown]
  - Purulent discharge [Unknown]
  - Malignant neoplasm progression [Unknown]
  - Toothache [Unknown]
  - Osteomyelitis chronic [Unknown]
  - Radiolucency around implant [Unknown]
  - Tooth socket haemorrhage [Unknown]

NARRATIVE: CASE EVENT DATE: 201103
